FAERS Safety Report 11267648 (Version 1)
Quarter: 2015Q3

REPORT INFORMATION
  Report Type: Spontaneous
  Country: JP (occurrence: JP)
  Receive Date: 20150713
  Receipt Date: 20150713
  Transmission Date: 20151125
  Serious: Yes (Other)
  Sender: FDA-Public Use
  Company Number: JP-GLAXOSMITHKLINE-JP2015JPN096513

PATIENT
  Age: 80 Year
  Sex: Female

DRUGS (1)
  1. VALTREX [Suspect]
     Active Substance: VALACYCLOVIR HYDROCHLORIDE
     Dosage: 1000 MG, TID
     Route: 048

REACTIONS (5)
  - Consciousness fluctuating [Unknown]
  - Syncope [Unknown]
  - Toxic encephalopathy [Unknown]
  - Oliguria [Unknown]
  - Acute kidney injury [Unknown]
